FAERS Safety Report 18512373 (Version 1)
Quarter: 2020Q4

REPORT INFORMATION
  Report Type: Spontaneous
  Country: US (occurrence: US)
  Receive Date: 20201117
  Receipt Date: 20201117
  Transmission Date: 20210114
  Serious: Yes (Hospitalization, Other)
  Sender: FDA-Public Use
  Company Number: US-CELGENEUS-USA-20201103100

PATIENT
  Age: 82 Year
  Sex: Male

DRUGS (2)
  1. REVLIMID [Suspect]
     Active Substance: LENALIDOMIDE
     Indication: B-CELL LYMPHOMA
     Dosage: 20 MILLIGRAM
     Route: 048
     Dates: start: 20201008, end: 20201111
  2. REVLIMID [Suspect]
     Active Substance: LENALIDOMIDE
     Dosage: 10 MILLIGRAM
     Route: 048
     Dates: start: 20201103, end: 20201111

REACTIONS (7)
  - Neuropathy peripheral [Unknown]
  - Dyskinesia [Unknown]
  - Feeling abnormal [Unknown]
  - Vomiting [Unknown]
  - Grip strength decreased [Unknown]
  - Myocardial infarction [Unknown]
  - Fatigue [Unknown]

NARRATIVE: CASE EVENT DATE: 20201010
